FAERS Safety Report 20724828 (Version 1)
Quarter: 2022Q2

REPORT INFORMATION
  Report Type: Spontaneous
  Country: CA (occurrence: CA)
  Receive Date: 20220419
  Receipt Date: 20220419
  Transmission Date: 20220720
  Serious: Yes (Other)
  Sender: FDA-Public Use
  Company Number: CA-SAMSUNG BIOEPIS-SB-2022-08976

PATIENT
  Age: 27 Year
  Sex: Male
  Weight: 81 kg

DRUGS (1)
  1. INFLIXIMAB [Suspect]
     Active Substance: INFLIXIMAB
     Indication: Crohn^s disease
     Route: 042

REACTIONS (3)
  - Weight decreased [Unknown]
  - Intentional product use issue [Unknown]
  - Off label use [Unknown]
